FAERS Safety Report 22181913 (Version 1)
Quarter: 2023Q2

REPORT INFORMATION
  Report Type: Spontaneous
  Country: US (occurrence: None)
  Receive Date: 20230405
  Receipt Date: 20230405
  Transmission Date: 20230721
  Serious: No
  Sender: FDA-Public Use
  Company Number: None

PATIENT
  Age: 70 Year
  Sex: Female
  Weight: 113.08 kg

DRUGS (16)
  1. TEMOZOLOMIDE [Suspect]
     Active Substance: TEMOZOLOMIDE
     Indication: Brain neoplasm malignant
     Dosage: FREQUENCY : DAILY;?
     Route: 048
  2. ACETAMINOPHEN [Concomitant]
     Active Substance: ACETAMINOPHEN
  3. ASPIRIN [Concomitant]
     Active Substance: ASPIRIN
  4. BUPROPION [Concomitant]
     Active Substance: BUPROPION
  5. CYCLOBENZAPRINE [Concomitant]
     Active Substance: CYCLOBENZAPRINE
  6. CYANOCOBALAMIN\FOLIC ACID\PYRIDOXINE HYDROCHLORIDE [Concomitant]
     Active Substance: CYANOCOBALAMIN\FOLIC ACID\PYRIDOXINE HYDROCHLORIDE
  7. IBUPROFEN [Concomitant]
     Active Substance: IBUPROFEN
  8. IBUPROFEN [Concomitant]
     Active Substance: IBUPROFEN
  9. IMODIUM A-D [Concomitant]
     Active Substance: LOPERAMIDE HYDROCHLORIDE
  10. LEVETIRACETAM [Concomitant]
     Active Substance: LEVETIRACETAM
  11. LEVOTHYROXINE [Concomitant]
     Active Substance: LEVOTHYROXINE
  12. LISINOPRIL [Concomitant]
     Active Substance: LISINOPRIL
  13. PEPTO-BISMOL [Concomitant]
     Active Substance: BISMUTH SUBSALICYLATE
  14. PHENTERMINE [Concomitant]
     Active Substance: PHENTERMINE
  15. SYNTHROID [Concomitant]
     Active Substance: LEVOTHYROXINE SODIUM
  16. VITAMIN D3 [Concomitant]
     Active Substance: CHOLECALCIFEROL

REACTIONS (2)
  - Hospice care [None]
  - Therapy cessation [None]
